FAERS Safety Report 16661697 (Version 1)
Quarter: 2019Q3

REPORT INFORMATION
  Report Type: Spontaneous
  Country: FR (occurrence: FR)
  Receive Date: 20190802
  Receipt Date: 20190802
  Transmission Date: 20191004
  Serious: Yes (Hospitalization)
  Sender: FDA-Public Use
  Company Number: FR-PFIZER INC-2019325526

PATIENT
  Age: 14 Year
  Sex: Female
  Weight: 57 kg

DRUGS (5)
  1. METHOTREXATE MYLAN [Suspect]
     Active Substance: METHOTREXATE SODIUM
     Indication: ACUTE MYELOID LEUKAEMIA
     Dosage: 15 MG, 2 TOTAL
     Route: 037
     Dates: start: 20190617, end: 20190620
  2. DEPO-MEDROL [Suspect]
     Active Substance: METHYLPREDNISOLONE ACETATE
     Indication: ACUTE MYELOID LEUKAEMIA
     Dosage: 20 MG, 2 TOTAL
     Route: 037
     Dates: start: 20190617, end: 20190620
  3. CYTARABINE. [Suspect]
     Active Substance: CYTARABINE
     Indication: ACUTE MYELOID LEUKAEMIA
     Dosage: 30 MG, 2 TOTAL
     Route: 037
     Dates: start: 20190617, end: 20190620
  4. MITOXANTRONE [MITOXANTRONE HYDROCHLORIDE] [Suspect]
     Active Substance: MITOXANTRONE HYDROCHLORIDE
     Indication: ACUTE MYELOID LEUKAEMIA
     Dosage: 19.8 MG, 1X/DAY
     Route: 041
     Dates: start: 20190614, end: 20190618
  5. CYTARABINE ACCORD [Suspect]
     Active Substance: CYTARABINE
     Indication: ACUTE MYELOID LEUKAEMIA
     Dosage: 330 MG, 1X/DAY
     Route: 041
     Dates: start: 20190614, end: 20190620

REACTIONS (3)
  - Off label use [Recovered/Resolved]
  - Encephalopathy [Recovered/Resolved]
  - Product use issue [Recovered/Resolved]

NARRATIVE: CASE EVENT DATE: 20190630
